FAERS Safety Report 11714297 (Version 1)
Quarter: 2015Q4

REPORT INFORMATION
  Report Type: Spontaneous
  Country: US (occurrence: US)
  Receive Date: 20151109
  Receipt Date: 20151109
  Transmission Date: 20160304
  Serious: No
  Sender: FDA-Public Use
  Company Number: US-BIOGENIDEC-2015BI148329

PATIENT
  Age: 59 Year
  Sex: Female
  Weight: 113 kg

DRUGS (12)
  1. HYDROCODONE/ACETAMINOPHEN [Concomitant]
     Active Substance: ACETAMINOPHEN\HYDROCODONE
  2. TECFIDERA [Suspect]
     Active Substance: DIMETHYL FUMARATE
     Indication: MULTIPLE SCLEROSIS
     Dates: end: 20150928
  3. METFORMIN HYDROCHLORIDE (METFORMIN HYDROCHLORIDE) [Concomitant]
     Active Substance: METFORMIN HYDROCHLORIDE
  4. PIOGLITAZONE (PIOGLITAZONE HYDROCHLORIDE) [Concomitant]
  5. CLINDAMYCIN (CLINDAMYCIN PHOSPHATE) [Concomitant]
  6. LOSARTAN (LOSARTAN POTASSIUM) [Concomitant]
  7. MOMETASONE FUROATE. [Concomitant]
     Active Substance: MOMETASONE FUROATE
  8. SIMVASTATIN. [Concomitant]
     Active Substance: SIMVASTATIN
  9. METRONIDAZOLE. [Concomitant]
     Active Substance: METRONIDAZOLE
  10. TIZANIDINE. [Concomitant]
     Active Substance: TIZANIDINE
  11. AMPYRA [Concomitant]
     Active Substance: DALFAMPRIDINE
     Dates: start: 201210
  12. LEVOTHYROXINE SODIUM. [Concomitant]
     Active Substance: LEVOTHYROXINE SODIUM

REACTIONS (1)
  - Blood test abnormal [Unknown]
